FAERS Safety Report 16543216 (Version 1)
Quarter: 2019Q3

REPORT INFORMATION
  Report Type: Spontaneous
  Country: GB (occurrence: GB)
  Receive Date: 20190709
  Receipt Date: 20190709
  Transmission Date: 20191004
  Serious: Yes (Hospitalization)
  Sender: FDA-Public Use
  Company Number: GB-TEVA-2019-GB-1074108

PATIENT
  Age: 79 Year
  Sex: Female

DRUGS (8)
  1. AMLODIPINE [Suspect]
     Active Substance: AMLODIPINE BESYLATE
     Dosage: 10 MG PER DAY
     Route: 048
     Dates: end: 20190606
  2. METFORMIN [Concomitant]
     Active Substance: METFORMIN HYDROCHLORIDE
     Dosage: AT EVENING MEAL, 1 G PER DAY
     Route: 048
  3. BISOPROLOL [Concomitant]
     Active Substance: BISOPROLOL
     Dosage: 1.25 MG PER DAY
     Route: 048
  4. OMEPRAZOLE. [Suspect]
     Active Substance: OMEPRAZOLE
     Dosage: 40 MG PER DAY
     Route: 048
     Dates: end: 20190606
  5. SIMVASTATIN. [Concomitant]
     Active Substance: SIMVASTATIN
     Dosage: NIGHT, 20 MG PER DAY
     Route: 054
  6. RAMIPRIL. [Suspect]
     Active Substance: RAMIPRIL
     Dosage: REDUCED TO 5MG ONCE A DAY, 10 MG PER DAY
     Route: 048
     Dates: end: 20190606
  7. ISOPHANE INSULIN [Concomitant]
     Active Substance: INSULIN NOS
     Dosage: 30UNITS AT BREAKFAST 20UNITS WITH TEA. 100UNITS/ML, 50 IU PER DAY
     Route: 058
  8. COCODAMOL [Concomitant]
     Active Substance: ACETAMINOPHEN\CODEINE PHOSPHATE
     Dosage: 1-2 FOUR TIMES A DAY. 8MG/500MG.
     Route: 048

REACTIONS (3)
  - Dizziness [Unknown]
  - Hypomagnesaemia [Recovered/Resolved]
  - Orthostatic hypotension [Recovering/Resolving]

NARRATIVE: CASE EVENT DATE: 20190605
